FAERS Safety Report 8524390-3 (Version None)
Quarter: 2012Q3

REPORT INFORMATION
  Report Type: 
  Country: None (occurrence: None)
  Receive Date: 20120720
  Receipt Date: 20120711
  Transmission Date: 20120928
  Serious: Yes (Other)
  Sender: FDA-Public Use
  Company Number: GB-ASTRAZENECA-2012SE47999

PATIENT
  Age: 31 Year
  Sex: Female
  Weight: 51 kg

DRUGS (2)
  1. QUETIAPINE [Suspect]
     Dosage: THE PATIENT TOOK 9 X 200 MG TABLETS POSSIBLY DURING EARLY PREGNANCY
     Route: 048
  2. QUETIAPINE [Suspect]
     Route: 048
     Dates: start: 20111022

REACTIONS (3)
  - OVERDOSE [None]
  - MATERNAL EXPOSURE DURING PREGNANCY [None]
  - STILLBIRTH [None]
